FAERS Safety Report 9804476 (Version 1)
Quarter: 2014Q1

REPORT INFORMATION
  Report Type: Spontaneous
  Country: US (occurrence: US)
  Receive Date: 20140108
  Receipt Date: 20140108
  Transmission Date: 20141002
  Serious: Yes (Death)
  Sender: FDA-Public Use
  Company Number: US-CELGENEUS-163-21880-14010607

PATIENT
  Age: 74 Year
  Sex: Male

DRUGS (10)
  1. REVLIMID [Suspect]
     Indication: PLASMA CELL MYELOMA
     Dosage: 25 MILLIGRAM
     Route: 048
     Dates: start: 20131029, end: 20131126
  2. SAR650984 [Suspect]
     Indication: PLASMA CELL MYELOMA
     Route: 065
     Dates: start: 20131029, end: 20131029
  3. DEXAMETHASONE [Suspect]
     Indication: PLASMA CELL MYELOMA
     Dosage: 40 MG
     Route: 048
     Dates: start: 20131029
  4. ASA [Concomitant]
     Indication: PROPHYLAXIS
     Route: 065
     Dates: start: 2012
  5. ACETAMINOPHEN [Concomitant]
     Indication: PROPHYLAXIS
     Route: 065
  6. DIPHENHYDRAMINE [Concomitant]
     Indication: PROPHYLAXIS
     Route: 065
  7. FAMOTIDINE [Concomitant]
     Indication: PROPHYLAXIS
     Route: 065
  8. PLASMA-LYTE [Concomitant]
     Indication: PRODUCT USED FOR UNKNOWN INDICATION
     Route: 065
  9. PROPOFOL [Concomitant]
     Indication: PRODUCT USED FOR UNKNOWN INDICATION
     Route: 065
     Dates: start: 20131015, end: 20131015
  10. LIDOCAINE [Concomitant]
     Indication: PRODUCT USED FOR UNKNOWN INDICATION
     Route: 065

REACTIONS (1)
  - Cerebrovascular accident [Fatal]
